FAERS Safety Report 6127526-7 (Version None)
Quarter: 2009Q1

REPORT INFORMATION
  Report Type: 
  Country: None (occurrence: None)
  Receive Date: 20090323
  Receipt Date: 20090313
  Transmission Date: 20090719
  Serious: Yes (Other)
  Sender: FDA-Public Use
  Company Number: PHHY2008GB33409

PATIENT
  Sex: Male

DRUGS (7)
  1. CLOZARIL [Suspect]
     Indication: SCHIZOPHRENIA
     Dosage: UNK
     Route: 048
     Dates: start: 20051202
  2. ASPIRIN [Concomitant]
     Indication: EPILEPSY
     Dosage: 75 MG/DAY
     Route: 048
     Dates: start: 20080910
  3. CLONAZEPINE [Concomitant]
     Indication: SCHIZOPHRENIA
     Dosage: 150 MG NOCTE / 125 MG MANE
     Route: 048
     Dates: start: 19970101
  4. CLONAZEPINE [Concomitant]
     Dosage: 1
  5. THYROXINE [Concomitant]
     Indication: HYPOTHYROIDISM
     Dosage: 50 MG/DAY
     Route: 048
     Dates: start: 20081118
  6. EPILIM MR [Concomitant]
     Indication: EPILEPSY
     Dosage: 500 MG/DAY
     Route: 048
     Dates: start: 20080910
  7. SIMVASTATIN [Concomitant]
     Indication: HYPERLIPIDAEMIA
     Dosage: 40 MG/DAY
     Route: 048
     Dates: start: 20080924

REACTIONS (3)
  - EPILEPSY [None]
  - HYPERLIPIDAEMIA [None]
  - HYPOTHYROIDISM [None]
